FAERS Safety Report 9618976 (Version 1)
Quarter: 2013Q4

REPORT INFORMATION
  Report Type: Spontaneous
  Country: FR (occurrence: FR)
  Receive Date: 20131014
  Receipt Date: 20131014
  Transmission Date: 20140711
  Serious: Yes (Hospitalization)
  Sender: FDA-Public Use
  Company Number: FR-ROCHE-1286319

PATIENT
  Age: 0 Day
  Sex: Male
  Weight: 3.5 kg

DRUGS (4)
  1. RIVOTRIL [Suspect]
     Indication: EPILEPSY
     Route: 064
     Dates: start: 20111101, end: 20120715
  2. RIVOTRIL [Suspect]
     Route: 064
     Dates: start: 20120715, end: 20120730
  3. LAMICTAL [Suspect]
     Indication: EPILEPSY
     Route: 064
     Dates: start: 20111101, end: 20120715
  4. LAMICTAL [Suspect]
     Route: 064
     Dates: start: 20120715, end: 20120730

REACTIONS (3)
  - Neonatal respiratory distress syndrome [Recovered/Resolved]
  - Hypotonia neonatal [Recovered/Resolved]
  - Foetal exposure during pregnancy [Unknown]
